FAERS Safety Report 12274285 (Version 1)
Quarter: 2016Q2

REPORT INFORMATION
  Report Type: Spontaneous
  Country: US (occurrence: US)
  Receive Date: 20160415
  Receipt Date: 20160415
  Transmission Date: 20160815
  Serious: No
  Sender: FDA-Public Use
  Company Number: US-ALLERGAN-1510389US

PATIENT
  Age: 60 Year
  Sex: Female
  Weight: 57.6 kg

DRUGS (6)
  1. LISINOPRIL. [Concomitant]
     Active Substance: LISINOPRIL
     Indication: BLOOD PRESSURE MEASUREMENT
     Dosage: 10 MG, UNK
     Route: 048
  2. ZOLOFT [Concomitant]
     Active Substance: SERTRALINE HYDROCHLORIDE
     Indication: DEPRESSION
     Dosage: 50 MG, UNK
  3. VAGIFEM [Concomitant]
     Active Substance: ESTRADIOL
     Indication: OESTROGEN REPLACEMENT THERAPY
     Dosage: UNK UNK, BI-WEEKLY
     Route: 067
  4. WELLBUTRIN [Concomitant]
     Active Substance: BUPROPION HYDROCHLORIDE
     Indication: DEPRESSION
     Dosage: 150 MG, QD
     Dates: start: 2014
  5. LATISSE [Suspect]
     Active Substance: BIMATOPROST
     Indication: PRODUCT USED FOR UNKNOWN INDICATION
     Dosage: ONCE AT NIGHT
     Dates: start: 20150529, end: 20150601
  6. NASAL SPRAY II [Concomitant]
     Indication: HYPERSENSITIVITY
     Route: 055

REACTIONS (4)
  - Blepharal pigmentation [Not Recovered/Not Resolved]
  - Eyelid pain [Not Recovered/Not Resolved]
  - Eye pain [Unknown]
  - Eye irritation [Unknown]

NARRATIVE: CASE EVENT DATE: 201505
